FAERS Safety Report 7240778-5 (Version None)
Quarter: 2011Q1

REPORT INFORMATION
  Report Type: 
  Country: None (occurrence: None)
  Receive Date: 20110124
  Receipt Date: 20110114
  Transmission Date: 20110831
  Serious: Yes (Hospitalization, Disabling, Other)
  Sender: FDA-Public Use
  Company Number: US-ASTRAZENECA-2011SE02552

PATIENT
  Sex: Male

DRUGS (5)
  1. HYDROCHLOROTHIAZIDE [Concomitant]
     Indication: HYPERTENSION
     Route: 048
  2. SEROQUEL XR [Suspect]
     Route: 048
     Dates: start: 20100101
  3. PRESCRIPTION SLEEP AID [Concomitant]
     Indication: INSOMNIA
     Route: 048
  4. PRESCRIPTION SLEEP AID [Concomitant]
     Indication: ABNORMAL DREAMS
     Route: 048
  5. SEROQUEL XR [Suspect]
     Route: 048

REACTIONS (7)
  - VISUAL ACUITY REDUCED [None]
  - HEAD INJURY [None]
  - LOSS OF CONSCIOUSNESS [None]
  - CEREBRAL HAEMORRHAGE [None]
  - CLAVICLE FRACTURE [None]
  - FALL [None]
  - DIZZINESS [None]
